FAERS Safety Report 8459529-1 (Version None)
Quarter: 2012Q2

REPORT INFORMATION
  Report Type: 
  Country: None (occurrence: None)
  Receive Date: 20120622
  Receipt Date: 20120612
  Transmission Date: 20120825
  Serious: Yes (Hospitalization)
  Sender: FDA-Public Use
  Company Number: US-JNJFOC-20120608258

PATIENT
  Sex: Male

DRUGS (2)
  1. INVEGA SUSTENNA [Suspect]
     Indication: SCHIZOPHRENIA
     Route: 030
     Dates: start: 20120101, end: 20120101
  2. INVEGA SUSTENNA [Suspect]
     Route: 030
     Dates: start: 20120101

REACTIONS (2)
  - AGITATION [None]
  - ANGER [None]
